FAERS Safety Report 8063809-1 (Version None)
Quarter: 2012Q1

REPORT INFORMATION
  Report Type: 
  Country: None (occurrence: None)
  Receive Date: 20120123
  Receipt Date: 20120109
  Transmission Date: 20120608
  Serious: Yes (Death)
  Sender: FDA-Public Use
  Company Number: US-MERCK-1201USA02260

PATIENT
  Age: 17 Year
  Sex: Female

DRUGS (17)
  1. MAGNESIUM (UNSPECIFIED) [Suspect]
     Route: 048
  2. GUAIFENESIN [Suspect]
     Route: 048
  3. SINGULAIR [Suspect]
     Route: 048
  4. LOPERAMIDE HCL [Suspect]
     Route: 048
  5. IBUPROFEN [Suspect]
     Route: 048
  6. PHENOL [Suspect]
     Route: 048
  7. FLUOXETINE [Suspect]
     Route: 048
  8. ACETAMINOPHEN AND HYDROCODONE BITARTRATE [Suspect]
     Route: 048
  9. ROSUVASTATIN CALCIUM [Suspect]
     Route: 048
  10. HALOPERIDOL [Suspect]
     Route: 048
  11. METHYLPHENIDATE [Suspect]
     Route: 048
  12. CITALOPRAM HYDROBROMIDE [Suspect]
     Route: 048
  13. NAPROXEN [Suspect]
     Route: 048
  14. PSEUDOEPHEDRINE HCL [Suspect]
     Route: 048
  15. DEXTROMETHORPHAN [Suspect]
     Route: 048
  16. GASTROINTESTINAL PREPARATIONS (UNSPECIFIED) [Suspect]
     Route: 048
  17. HYOSCYAMINE [Suspect]
     Route: 048

REACTIONS (2)
  - OVERDOSE [None]
  - COMPLETED SUICIDE [None]
